FAERS Safety Report 5711253-1 (Version None)
Quarter: 2008Q2

REPORT INFORMATION
  Report Type: 
  Country: None (occurrence: None)
  Receive Date: 20080415
  Receipt Date: 20080403
  Transmission Date: 20081010
  Serious: Yes (Hospitalization)
  Sender: FDA-Public Use
  Company Number: 2007BI026983

PATIENT
  Age: 24 Year
  Sex: Female

DRUGS (2)
  1. TYSABRI [Suspect]
     Indication: RELAPSING-REMITTING MULTIPLE SCLEROSIS
     Dosage: 100 MG QM IV
     Route: 042
     Dates: start: 20070927, end: 20071026
  2. REBIF [Concomitant]

REACTIONS (1)
  - ANAPHYLACTIC SHOCK [None]
